FAERS Safety Report 5688035-2 (Version None)
Quarter: 2008Q1

REPORT INFORMATION
  Report Type: 
  Country: None (occurrence: None)
  Receive Date: 20080328
  Receipt Date: 20080321
  Transmission Date: 20080703
  Serious: No
  Sender: FDA-Public Use
  Company Number: US-BAXTER-2008BH002636

PATIENT
  Sex: Female

DRUGS (1)
  1. HEPARIN SODIUM [Suspect]
     Indication: BLADDER IRRIGATION
     Dosage: DOSE UNIT:UNKNOWN
     Route: 065
     Dates: start: 20070418

REACTIONS (3)
  - CYSTITIS [None]
  - IMPAIRED HEALING [None]
  - PAIN [None]
